FAERS Safety Report 5049322-4 (Version None)
Quarter: 2006Q3

REPORT INFORMATION
  Report Type: 
  Country: None (occurrence: None)
  Receive Date: 20060706
  Receipt Date: 20060620
  Transmission Date: 20061208
  Serious: Yes (Other)
  Sender: FDA-Public Use
  Company Number: S06-CAN-02486-01

PATIENT
  Sex: 0

DRUGS (1)
  1. TIAZAC [Suspect]

REACTIONS (1)
  - BRADYCARDIA [None]
